FAERS Safety Report 7570058-X (Version None)
Quarter: 2011Q2

REPORT INFORMATION
  Report Type: 
  Country: None (occurrence: None)
  Receive Date: 20110624
  Receipt Date: 20110614
  Transmission Date: 20111010
  Serious: Yes (Hospitalization)
  Sender: FDA-Public Use
  Company Number: NL-JNJFOC-20110607065

PATIENT
  Sex: Female
  Weight: 60 kg

DRUGS (5)
  1. FERROFUMARAT [Concomitant]
     Indication: ANAEMIA
     Route: 048
  2. METOPROLOL TARTRATE [Concomitant]
     Indication: HYPERTENSION
     Route: 048
  3. ISOSORBIDE MONONITRATE [Concomitant]
     Indication: HYPERTENSION
     Route: 048
  4. BETAHISTINE [Concomitant]
     Indication: DIZZINESS
     Route: 048
     Dates: end: 20110504
  5. IMODIUM [Suspect]
     Indication: DIARRHOEA
     Route: 048
     Dates: start: 20110502, end: 20110504

REACTIONS (1)
  - CHOREA [None]
